FAERS Safety Report 6831698-6 (Version None)
Quarter: 2010Q3

REPORT INFORMATION
  Report Type: 
  Country: None (occurrence: None)
  Receive Date: 20100712
  Receipt Date: 20100709
  Transmission Date: 20110219
  Serious: Yes (Life-Threatening)
  Sender: FDA-Public Use
  Company Number: JP-ASTRAZENECA-2010SE27775

PATIENT
  Age: 79 Year
  Sex: Male

DRUGS (3)
  1. CASODEX [Suspect]
     Indication: PROSTATE CANCER
     Route: 048
     Dates: start: 20100326
  2. AZULFIDINE [Suspect]
     Route: 048
  3. LEUPLIN [Concomitant]
     Route: 058
     Dates: start: 20100420

REACTIONS (2)
  - CARDIAC FAILURE [None]
  - PNEUMONIA [None]
